FAERS Safety Report 15478370 (Version 1)
Quarter: 2018Q4

REPORT INFORMATION
  Report Type: Spontaneous
  Country: NL (occurrence: NL)
  Receive Date: 20181009
  Receipt Date: 20181009
  Transmission Date: 20190205
  Serious: Yes (Other)
  Sender: FDA-Public Use
  Company Number: NL-TEVA-2018-NL-961432

PATIENT
  Age: 55 Year
  Sex: Female

DRUGS (7)
  1. DOXORUBICIN (HYDROXYDAUNORUBICIN) [Suspect]
     Active Substance: DOXORUBICIN HYDROCHLORIDE
     Indication: MANTLE CELL LYMPHOMA
     Dosage: PART OF R-CHOP CHEMOTHERAPY; THERAPY  WAS CONTINUED AND COMPLETED SCHEDULED 8 CYCLES
     Route: 065
  2. PREDNISONE. [Suspect]
     Active Substance: PREDNISONE
     Indication: MANTLE CELL LYMPHOMA
     Dosage: 100 MILLIGRAM DAILY; THREE DAYS BEFORE CHEMOTHERAPY REGIMEN
     Route: 048
  3. RITUXIMAB. [Suspect]
     Active Substance: RITUXIMAB
     Indication: MANTLE CELL LYMPHOMA
     Dosage: PART OF R-CHOP CHEMOTHERAPY; THERAPY  WAS CONTINUED AND COMPLETED SCHEDULED 8 CYCLES
     Route: 065
  4. METHYLPREDNISOLONE. [Concomitant]
     Active Substance: METHYLPREDNISOLONE
     Indication: ENDOCRINE OPHTHALMOPATHY
     Dosage: 1000 MILLIGRAM DAILY; THERAPY WAS COMPLETED
     Route: 042
  5. PREDNISONE. [Suspect]
     Active Substance: PREDNISONE
     Indication: ENDOCRINE OPHTHALMOPATHY
     Dosage: 60 MILLIGRAM DAILY; PART OF R-CHOP CHEMOTHERAPY; DOSE REDUCED, BUT THERAPY COMPLETED SCHEDULED 8 CYC
     Route: 048
  6. PREDNISONE. [Suspect]
     Active Substance: PREDNISONE
     Dosage: 60-100 MG PER DAY DURING DAY 1-5 OF CHEMOTHERAPY OF EVERY CYCLE
     Route: 048
  7. CYCLOPHOSPHAMIDE. [Suspect]
     Active Substance: CYCLOPHOSPHAMIDE
     Indication: MANTLE CELL LYMPHOMA
     Dosage: PART OF R-CHOP CHEMOTHERAPY; THERAPY WAS CONTINUED AND COMPLETED SCHEDULED 8 CYCLES
     Route: 065

REACTIONS (2)
  - Endocrine ophthalmopathy [Recovering/Resolving]
  - Intraocular pressure increased [Unknown]
